FAERS Safety Report 8553161-7 (Version None)
Quarter: 2012Q3

REPORT INFORMATION
  Report Type: 
  Country: None (occurrence: None)
  Receive Date: 20120731
  Receipt Date: 20120726
  Transmission Date: 20120928
  Serious: Yes (Other)
  Sender: FDA-Public Use
  Company Number: US-PFIZER INC-2012182150

PATIENT
  Sex: Female
  Weight: 86.168 kg

DRUGS (3)
  1. LYRICA [Suspect]
     Indication: NEURALGIA
  2. LYRICA [Suspect]
     Indication: FIBROMYALGIA
     Dosage: 100 MG, SIX TIMES A DAY
     Route: 048
     Dates: start: 20060101
  3. KLONOPIN [Concomitant]
     Indication: ANXIETY
     Dosage: 1 MG, 2X/DAY

REACTIONS (1)
  - INTERVERTEBRAL DISC PROTRUSION [None]
